FAERS Safety Report 13703976 (Version 1)
Quarter: 2017Q2

REPORT INFORMATION
  Report Type: Report from Study
  Country: AU (occurrence: AU)
  Receive Date: 20170629
  Receipt Date: 20170629
  Transmission Date: 20170830
  Serious: Yes (Hospitalization, Other)
  Sender: FDA-Public Use
  Company Number: AU-ROCHE-1899282

PATIENT
  Sex: Female

DRUGS (14)
  1. METHOTREXATE. [Concomitant]
     Active Substance: METHOTREXATE
     Indication: RHEUMATOID ARTHRITIS
     Route: 065
  2. TARGIN [Concomitant]
     Active Substance: NALOXONE HYDROCHLORIDE\OXYCODONE HYDROCHLORIDE
     Dosage: 7.6/3.75
     Route: 065
  3. SALBUTAMOL [Concomitant]
     Active Substance: ALBUTEROL
     Dosage: 2-4 PUFFS
     Route: 065
  4. FLUVOXAMINE [Concomitant]
     Active Substance: FLUVOXAMINE
     Route: 065
  5. TELMISARTAN. [Concomitant]
     Active Substance: TELMISARTAN
     Indication: HYPERTENSION
     Route: 065
  6. OXYCODONE [Concomitant]
     Active Substance: OXYCODONE
     Dosage: WHEN NECESSARY
     Route: 065
  7. ENDONE [Concomitant]
     Active Substance: OXYCODONE HYDROCHLORIDE
  8. ACTEMRA [Suspect]
     Active Substance: TOCILIZUMAB
     Indication: RHEUMATOID ARTHRITIS
     Route: 042
     Dates: start: 20131010
  9. METHOTREXATE. [Concomitant]
     Active Substance: METHOTREXATE
     Route: 048
  10. PANTOPRAZOLE [Concomitant]
     Active Substance: PANTOPRAZOLE
     Route: 065
  11. PARACETAMOL [Concomitant]
     Active Substance: ACETAMINOPHEN
     Route: 065
  12. ACTEMRA [Suspect]
     Active Substance: TOCILIZUMAB
     Route: 042
  13. TOFACITINIB [Concomitant]
     Active Substance: TOFACITINIB
     Route: 065
  14. FOLIC ACID. [Concomitant]
     Active Substance: FOLIC ACID
     Route: 065

REACTIONS (8)
  - Pain [Unknown]
  - Abdominal pain upper [Unknown]
  - Infection [Recovered/Resolved]
  - Bile duct stone [Unknown]
  - Cholangitis [Unknown]
  - Tooth infection [Recovered/Resolved]
  - Swelling face [Recovered/Resolved]
  - Local swelling [Recovered/Resolved]
